FAERS Safety Report 15164345 (Version 1)
Quarter: 2018Q3

REPORT INFORMATION
  Report Type: Spontaneous
  Country: ES (occurrence: ES)
  Receive Date: 20180719
  Receipt Date: 20180719
  Transmission Date: 20181010
  Serious: Yes (Other)
  Sender: FDA-Public Use
  Company Number: ES-TEVA-2018-ES-928524

PATIENT
  Age: 35 Year
  Sex: Female

DRUGS (1)
  1. PAROXETINA VIR [Suspect]
     Active Substance: PAROXETINE HYDROCHLORIDE
     Indication: DEPRESSION
     Dosage: 20 MILLIGRAM DAILY;
     Route: 048
     Dates: start: 20180209

REACTIONS (3)
  - Chest discomfort [Unknown]
  - Dry mouth [Unknown]
  - Trismus [Unknown]

NARRATIVE: CASE EVENT DATE: 20180209
